FAERS Safety Report 6181944-X (Version None)
Quarter: 2009Q2

REPORT INFORMATION
  Report Type: 
  Country: None (occurrence: None)
  Receive Date: 20090505
  Receipt Date: 20090428
  Transmission Date: 20091009
  Serious: Yes (Life-Threatening, Hospitalization)
  Sender: FDA-Public Use
  Company Number: SPV1-2009-00088

PATIENT
  Age: 18 Year
  Sex: Male
  Weight: 68 kg

DRUGS (2)
  1. LIALDA [Suspect]
     Indication: COLITIS ULCERATIVE
     Dosage: 1.2 G, 2X/DAY: BID, ORAL
     Route: 048
     Dates: start: 20090105, end: 20090114
  2. ROWASA [Concomitant]

REACTIONS (1)
  - DUODENAL ULCER HAEMORRHAGE [None]
